FAERS Safety Report 12388569 (Version 2)
Quarter: 2019Q1

REPORT INFORMATION
  Report Type: Spontaneous
  Country: US (occurrence: US)
  Receive Date: 20160520
  Receipt Date: 20190208
  Transmission Date: 20190417
  Serious: No
  Sender: FDA-Public Use
  Company Number: US-PFIZER INC-2016235002

PATIENT
  Age: 52 Year
  Sex: Male

DRUGS (10)
  1. LYRICA [Concomitant]
     Active Substance: PREGABALIN
     Dosage: 150 MG, UNK
  2. NAPROXEN. [Concomitant]
     Active Substance: NAPROXEN
     Dosage: 375 MG, UNK
  3. LISINOPRIL HCTZ [Concomitant]
     Active Substance: HYDROCHLOROTHIAZIDE\LISINOPRIL
     Dosage: LISINOPRIL 20 MG - HYDROCHLOROTHIAZID 12.5MG
  4. NEURONTIN [Suspect]
     Active Substance: GABAPENTIN
     Dosage: UNK
  5. NEXIUM [Concomitant]
     Active Substance: ESOMEPRAZOLE MAGNESIUM
     Dosage: 40 MG, UNK
  6. OTC BAYER LOW DOSE ASPIRIN [Concomitant]
     Dosage: UNK
  7. CYCLOBENZAPRINE. [Concomitant]
     Active Substance: CYCLOBENZAPRINE
     Dosage: 10 MG, UNK
  8. SIMVASTATIN. [Concomitant]
     Active Substance: SIMVASTATIN
     Dosage: 20 MG, UNK
  9. PERCOCET [Concomitant]
     Active Substance: ACETAMINOPHEN\OXYCODONE HYDROCHLORIDE
     Dosage: OXYCODONE HYDROCHLORIDE 10MG-PARACETAMOL 325
  10. AMLODIPINE [Concomitant]
     Active Substance: AMLODIPINE BESYLATE
     Dosage: 5 MG, UNK

REACTIONS (1)
  - Drug hypersensitivity [Unknown]
